FAERS Safety Report 6498886-2 (Version None)
Quarter: 2009Q4

REPORT INFORMATION
  Report Type: 
  Country: None (occurrence: None)
  Receive Date: 20091127
  Receipt Date: 20081024
  Transmission Date: 20100525
  Serious: No
  Sender: FDA-Public Use
  Company Number: 280773

PATIENT
  Age: 67 Year
  Sex: Female

DRUGS (1)
  1. NOVOLOG FLEXPEN (INSULIN ASPART) SOLUTION FOR INJECTION, 100/ML [Suspect]
     Indication: INSULIN-REQUIRING TYPE 2 DIABETES MELLITUS
     Dosage: SUBCUTANEOUS
     Route: 058
     Dates: start: 20080701

REACTIONS (1)
  - ARTHRALGIA [None]
